FAERS Safety Report 7851156-X (Version None)
Quarter: 2011Q4

REPORT INFORMATION
  Report Type: 
  Country: None (occurrence: None)
  Receive Date: 20111024
  Receipt Date: 20111010
  Transmission Date: 20120403
  Serious: Yes (Other)
  Sender: FDA-Public Use
  Company Number: BR-1188391

PATIENT
  Sex: Female

DRUGS (1)
  1. TIMOLOL MALEATE [Suspect]
     Dosage: (OPHTHALMIC)
     Route: 047
     Dates: start: 20110907

REACTIONS (13)
  - EYE IRRITATION [None]
  - PYREXIA [None]
  - EYE INFLAMMATION [None]
  - DRUG INEFFECTIVE [None]
  - HEADACHE [None]
  - SWELLING FACE [None]
  - CONJUNCTIVITIS [None]
  - INTRAOCULAR PRESSURE INCREASED [None]
  - SLEEP DISORDER [None]
  - DRUG DISPENSING ERROR [None]
  - BLINDNESS [None]
  - PRODUCT LABEL ON WRONG PRODUCT [None]
  - FATIGUE [None]
